FAERS Safety Report 24426905 (Version 1)
Quarter: 2024Q4

REPORT INFORMATION
  Report Type: Spontaneous
  Country: US (occurrence: US)
  Receive Date: 20241011
  Receipt Date: 20241011
  Transmission Date: 20250115
  Serious: No
  Sender: MYLAN
  Company Number: US-MYLANLABS-2024M1090963

PATIENT
  Sex: Female

DRUGS (2)
  1. THIAMINE HYDROCHLORIDE [Suspect]
     Active Substance: THIAMINE HYDROCHLORIDE
     Indication: Brain injury
     Dosage: 200 MILLIGRAM, BIWEEKLY (TWICE A WEEK)
     Route: 065
  2. THIAMINE HYDROCHLORIDE [Suspect]
     Active Substance: THIAMINE HYDROCHLORIDE
     Indication: Encephalopathy

REACTIONS (2)
  - Off label use [Unknown]
  - Product packaging quantity issue [Unknown]
